FAERS Safety Report 20209022 (Version 2)
Quarter: 2024Q1

REPORT INFORMATION
  Report Type: Spontaneous
  Country: US (occurrence: US)
  Receive Date: 20211220
  Receipt Date: 20240304
  Transmission Date: 20240410
  Serious: Yes (Hospitalization, Other)
  Sender: FDA-Public Use
  Company Number: US-PFIZER INC-202101762174

PATIENT
  Age: 59 Year
  Sex: Male

DRUGS (8)
  1. XELJANZ XR [Suspect]
     Active Substance: TOFACITINIB CITRATE
     Indication: Rheumatoid arthritis
     Dosage: 11 MG, 1X/DAY
     Route: 048
     Dates: start: 2018
  2. XELJANZ XR [Suspect]
     Active Substance: TOFACITINIB CITRATE
     Dosage: 11MG 1 TABLET ONCE A DAY
     Dates: start: 2018
  3. CELEBREX [Concomitant]
     Active Substance: CELECOXIB
  4. LISINOPRIL [Concomitant]
     Active Substance: LISINOPRIL
  5. AMLODIPINE [Concomitant]
     Active Substance: AMLODIPINE BESYLATE
  6. OMEPRAZOLE [Concomitant]
     Active Substance: OMEPRAZOLE
  7. PREGABALIN [Concomitant]
     Active Substance: PREGABALIN
  8. ATORVASTATIN [Concomitant]
     Active Substance: ATORVASTATIN

REACTIONS (6)
  - Infection [Recovered/Resolved]
  - Tonsil cancer [Unknown]
  - Product dose omission issue [Unknown]
  - Arthropod bite [Recovered/Resolved]
  - Headache [Recovered/Resolved]
  - Sinusitis [Unknown]

NARRATIVE: CASE EVENT DATE: 20211101
